FAERS Safety Report 9400272 (Version 2)
Quarter: 2013Q3

REPORT INFORMATION
  Report Type: Spontaneous
  Country: GB (occurrence: GB)
  Receive Date: 20130715
  Receipt Date: 20130819
  Transmission Date: 20140515
  Serious: Yes (Other)
  Sender: FDA-Public Use
  Company Number: GB-JNJFOC-20130705341

PATIENT
  Age: 62 Year
  Sex: Female
  Weight: 72 kg

DRUGS (5)
  1. STELARA [Suspect]
     Indication: PSORIASIS
     Route: 058
     Dates: start: 20110905
  2. SERETIDE [Concomitant]
     Dosage: FOR MANY YEARS
     Route: 065
  3. SALBUTAMOL [Concomitant]
     Dosage: FOR MANY YEARS
     Route: 065
  4. PRAVASTATIN [Concomitant]
     Dosage: FOR MANY YEARS
     Route: 048
  5. LOSARTAN [Concomitant]
     Dosage: FOR MANY YEARS
     Route: 048

REACTIONS (3)
  - Basal cell carcinoma [Not Recovered/Not Resolved]
  - Arthralgia [Unknown]
  - Local swelling [Unknown]
